FAERS Safety Report 8621815-X (Version None)
Quarter: 2012Q3

REPORT INFORMATION
  Report Type: 
  Country: None (occurrence: None)
  Receive Date: 20120821
  Receipt Date: 20120821
  Transmission Date: 20120928
  Serious: Yes (Hospitalization, Other)
  Sender: FDA-Public Use
  Company Number: None

PATIENT
  Age: 22 Month
  Sex: Male
  Weight: 9.95 kg

DRUGS (1)
  1. SULFAMETHOXAZOLE AND TRIMETHOPRIM [Suspect]
     Indication: ABSCESS
     Dosage: 1 TSP -5ML- BID PO
     Route: 048
     Dates: start: 20120818, end: 20120818

REACTIONS (4)
  - RASH [None]
  - SKIN EXFOLIATION [None]
  - ERYTHEMA [None]
  - SWELLING [None]
